FAERS Safety Report 9825648 (Version 3)
Quarter: 2014Q1

REPORT INFORMATION
  Report Type: Report from Study
  Country: NL (occurrence: NL)
  Receive Date: 20140117
  Receipt Date: 20140120
  Transmission Date: 20141002
  Serious: Yes (Life-Threatening)
  Sender: FDA-Public Use
  Company Number: NL-ROCHE-1330073

PATIENT
  Age: 67 Year
  Sex: Female
  Weight: 42 kg

DRUGS (6)
  1. RITUXIMAB [Suspect]
     Indication: MALIGNANT LYMPHOID NEOPLASM
     Dosage: DATE OF LAST DOSE PRIOR SAE: 24/DEC/2013?DATE OF LAST DOSE PRIOR SAE: 07/JAN/2014
     Route: 042
     Dates: start: 20131224
  2. METHOTREXATE [Suspect]
     Indication: MALIGNANT LYMPHOID NEOPLASM
     Dosage: DATE OF LAST DOSE PRIOR SAE: 25/DEC/2013?DATE OF LAST DOSE PRIOR SAE:  8/JAN/2014
     Route: 042
     Dates: start: 20131225
  3. TENIPOSIDE [Suspect]
     Indication: MALIGNANT LYMPHOID NEOPLASM
     Dosage: DATE OF LAST DOSE PRIOR SAE: 26/DEC/2013?DATE OF LAST DOSE PRIOR SAE: 27/DEC/2013
     Route: 042
     Dates: start: 20131226
  4. CARMUSTINE [Suspect]
     Indication: MALIGNANT LYMPHOID NEOPLASM
     Dosage: DATE OF LAST DOSE PRIOR SAE: 28/DEC/2013
     Route: 042
     Dates: start: 20131228
  5. PREDNISOLONE [Suspect]
     Indication: MALIGNANT LYMPHOID NEOPLASM
     Dosage: DATE OF LAST DOSE PRIOR SAE: 26/DEC/2013?DATE OF LAST DOSE PRIOR SAE: 29/DEC/2013
     Route: 048
     Dates: start: 20131225
  6. PANTOPRAZOLE [Concomitant]
     Indication: PROPHYLAXIS AGAINST GASTROINTESTINAL ULCER
     Dosage: 2X40MG, LAST DOSE WAS ON 11/JAN/2014
     Route: 048
     Dates: start: 20131229

REACTIONS (2)
  - Duodenal perforation [Recovered/Resolved]
  - Gastric haemorrhage [Not Recovered/Not Resolved]
